FAERS Safety Report 9665563 (Version 1)
Quarter: 2013Q4

REPORT INFORMATION
  Report Type: Spontaneous
  Country: US (occurrence: US)
  Receive Date: 20131104
  Receipt Date: 20131104
  Transmission Date: 20140711
  Serious: No
  Sender: FDA-Public Use
  Company Number: US-PFIZER INC-2013313192

PATIENT
  Sex: Female

DRUGS (3)
  1. SERTRALINE HCL [Suspect]
     Indication: DEPRESSION
     Dosage: 200 MG, DAILY
     Dates: start: 201308
  2. SERTRALINE HCL [Suspect]
     Indication: OBSESSIVE-COMPULSIVE DISORDER
  3. SERTRALINE HCL [Suspect]
     Indication: PANIC DISORDER

REACTIONS (2)
  - Drug ineffective [Unknown]
  - Drug tolerance [Unknown]
